FAERS Safety Report 4343660-6 (Version None)
Quarter: 2004Q2

REPORT INFORMATION
  Report Type: 
  Country: None (occurrence: None)
  Receive Date: 20040421
  Receipt Date: 20040421
  Transmission Date: 20050107
  Serious: Yes (Hospitalization)
  Sender: FDA-Public Use
  Company Number: None

PATIENT

DRUGS (1)
  1. CEREBYX [Suspect]
     Dosage: 17 MG/KG PE

REACTIONS (2)
  - CONFUSIONAL STATE [None]
  - VENTRICULAR TACHYCARDIA [None]
